FAERS Safety Report 12862529 (Version 3)
Quarter: 2016Q4

REPORT INFORMATION
  Report Type: Report from Study
  Country: CA (occurrence: CA)
  Receive Date: 20161019
  Receipt Date: 20161028
  Transmission Date: 20170207
  Serious: Yes (Other)
  Sender: FDA-Public Use
  Company Number: CA-TEVA-702966ACC

PATIENT
  Age: 32 Year
  Sex: Female

DRUGS (3)
  1. OMEGA 3 COMPLEX [Concomitant]
  2. CEPHALEXIN. [Concomitant]
     Active Substance: CEPHALEXIN
  3. COPAXONE [Suspect]
     Active Substance: GLATIRAMER ACETATE
     Indication: MULTIPLE SCLEROSIS
     Dosage: 20 MILLIGRAM/MILLILITERS DAILY;
     Route: 058
     Dates: start: 20150126

REACTIONS (5)
  - Necrosis [Unknown]
  - Injection site inflammation [Recovering/Resolving]
  - Scab [Recovering/Resolving]
  - Injection site haemorrhage [Recovering/Resolving]
  - Injection site haematoma [Unknown]

NARRATIVE: CASE EVENT DATE: 20160913
